FAERS Safety Report 8914226 (Version 1)
Quarter: 2012Q4

REPORT INFORMATION
  Report Type: 
  Country: US (occurrence: US)
  Receive Date: 20121119
  Receipt Date: 20121119
  Transmission Date: 20130627
  Serious: Yes (Hospitalization, Other)
  Sender: FDA-Public Use
  Company Number: US-ELI_LILLY_AND_COMPANY-US201211001517

PATIENT
  Age: 37 Year
  Sex: Female

DRUGS (2)
  1. CYMBALTA [Suspect]
     Indication: BONE PAIN
  2. REBIF [Concomitant]
     Dosage: 44 ug, 3/W
     Route: 058

REACTIONS (5)
  - Depressed mood [Unknown]
  - Suicidal ideation [Recovered/Resolved]
  - Mood swings [Recovered/Resolved]
  - Hypophagia [Unknown]
  - Intentional drug misuse [Unknown]
